FAERS Safety Report 23090940 (Version 1)
Quarter: 2023Q4

REPORT INFORMATION
  Report Type: Spontaneous
  Country: FR (occurrence: FR)
  Receive Date: 20231020
  Receipt Date: 20231020
  Transmission Date: 20240110
  Serious: Yes (Death, Other)
  Sender: FDA-Public Use
  Company Number: FR-SUN PHARMACEUTICAL INDUSTRIES LTD-2023R1-413853

PATIENT
  Age: 79 Year
  Sex: Female
  Weight: 79 kg

DRUGS (9)
  1. CASPOFUNGIN [Suspect]
     Active Substance: CASPOFUNGIN
     Indication: Systemic candida
     Dosage: UNK
     Route: 042
     Dates: start: 20230820, end: 20230827
  2. LEVOFLOXACIN [Suspect]
     Active Substance: LEVOFLOXACIN
     Indication: Sepsis
     Dosage: 1000 MILLIGRAM, QD
     Route: 048
     Dates: start: 20230820, end: 20230825
  3. ONDANSETRON [Suspect]
     Active Substance: ONDANSETRON
     Indication: Prophylaxis of nausea and vomiting
     Dosage: 8 MILLIGRAM, QD
     Route: 042
     Dates: start: 20230820, end: 20230827
  4. VANCOMYCIN HYDROCHLORIDE [Suspect]
     Active Substance: VANCOMYCIN HYDROCHLORIDE
     Indication: Sepsis
     Dosage: 2.5 GRAM
     Route: 042
     Dates: start: 20230820, end: 20230827
  5. SPIRAMYCIN [Suspect]
     Active Substance: SPIRAMYCIN
     Indication: Sepsis
     Dosage: UNK, QD
     Route: 042
     Dates: start: 20230825, end: 20230828
  6. VENETOCLAX [Suspect]
     Active Substance: VENETOCLAX
     Indication: Acute myeloid leukaemia
     Dosage: 100 MILLIGRAM, QD
     Route: 048
     Dates: start: 20230823, end: 20230824
  7. VENETOCLAX [Suspect]
     Active Substance: VENETOCLAX
     Dosage: 200 MILLIGRAM, QD
     Route: 048
     Dates: start: 20230825, end: 20230826
  8. VENETOCLAX [Suspect]
     Active Substance: VENETOCLAX
     Dosage: 400 MILLIGRAM, QD
     Route: 048
     Dates: start: 20230827, end: 20230827
  9. VIDAZA [Suspect]
     Active Substance: AZACITIDINE
     Indication: Acute myeloid leukaemia
     Dosage: 140 MILLIGRAM, QD
     Route: 058
     Dates: start: 20230823, end: 20230827

REACTIONS (2)
  - Hyperbilirubinaemia [Fatal]
  - Jaundice [Fatal]

NARRATIVE: CASE EVENT DATE: 20230828
